FAERS Safety Report 19966688 (Version 3)
Quarter: 2021Q4

REPORT INFORMATION
  Report Type: Report from Study
  Country: CA (occurrence: CA)
  Receive Date: 20211019
  Receipt Date: 20211206
  Transmission Date: 20220303
  Serious: Yes (Other)
  Sender: FDA-Public Use
  Company Number: CA-JNJFOC-20211023922

PATIENT
  Sex: Male
  Weight: 107.4 kg

DRUGS (1)
  1. REMICADE [Suspect]
     Active Substance: INFLIXIMAB
     Indication: Neurosarcoidosis
     Route: 042
     Dates: start: 20180122

REACTIONS (2)
  - Limb operation [Recovering/Resolving]
  - Squamous cell carcinoma [Unknown]
